FAERS Safety Report 21068033 (Version 1)
Quarter: 2022Q3

REPORT INFORMATION
  Report Type: Spontaneous
  Country: JP (occurrence: JP)
  Receive Date: 20220712
  Receipt Date: 20220712
  Transmission Date: 20221026
  Serious: Yes (Death, Other)
  Sender: FDA-Public Use
  Company Number: JP-009507513-2206JPN002302

PATIENT
  Age: 49 Year
  Sex: Female

DRUGS (1)
  1. TEMODAL [Suspect]
     Active Substance: TEMOZOLOMIDE
     Dosage: 1 CYCLE
     Route: 048

REACTIONS (4)
  - Death [Fatal]
  - Drug-induced liver injury [Recovering/Resolving]
  - Hypersensitivity [Recovering/Resolving]
  - Drug hypersensitivity [Unknown]
